FAERS Safety Report 8445321-0 (Version None)
Quarter: 2012Q2

REPORT INFORMATION
  Report Type: 
  Country: None (occurrence: None)
  Receive Date: 20120618
  Receipt Date: 20120608
  Transmission Date: 20120825
  Serious: Yes (Other)
  Sender: FDA-Public Use
  Company Number: US-ASTRAZENECA-2012SE38592

PATIENT

DRUGS (3)
  1. SEROQUEL [Suspect]
     Route: 048
  2. HALDOL [Concomitant]
  3. ASENAPINE [Concomitant]

REACTIONS (1)
  - TARDIVE DYSKINESIA [None]
